FAERS Safety Report 14378424 (Version 7)
Quarter: 2018Q1

REPORT INFORMATION
  Report Type: Report from Study
  Country: None (occurrence: NL)
  Receive Date: 20180111
  Receipt Date: 20180329
  Transmission Date: 20180509
  Serious: Yes (Hospitalization)
  Sender: FDA-Public Use
  Company Number: NL-ABBVIE-18K-114-2218294-00

PATIENT
  Age: 77 Year
  Sex: Female
  Weight: 48 kg

DRUGS (2)
  1. DUODOPA [Suspect]
     Active Substance: CARBIDOPA\LEVODOPA
     Indication: PARKINSON^S DISEASE
     Dosage: MD: 8, CD: 3.9, ED: 3, CND: 3.2, END: 2.0
     Route: 050
     Dates: start: 20140422
  2. DUODOPA [Suspect]
     Active Substance: CARBIDOPA\LEVODOPA
     Dosage: MD 8, CD 3, ED 3, CND 3, END 2
     Route: 050

REACTIONS (17)
  - Oxygen saturation decreased [Not Recovered/Not Resolved]
  - Restlessness [Not Recovered/Not Resolved]
  - Hallucination [Recovered/Resolved]
  - Muscle rigidity [Not Recovered/Not Resolved]
  - Device use error [Unknown]
  - Drug dose omission [Not Recovered/Not Resolved]
  - Aggression [Not Recovered/Not Resolved]
  - Confusional state [Recovered/Resolved]
  - Autophobia [Not Recovered/Not Resolved]
  - Off label use [Not Recovered/Not Resolved]
  - Incorrect route of drug administration [Not Recovered/Not Resolved]
  - Incorrect dose administered [Not Recovered/Not Resolved]
  - Gait disturbance [Not Recovered/Not Resolved]
  - Urinary tract infection [Not Recovered/Not Resolved]
  - Delirium [Not Recovered/Not Resolved]
  - Fatigue [Not Recovered/Not Resolved]
  - Abnormal faeces [Recovered/Resolved]

NARRATIVE: CASE EVENT DATE: 20180106
